FAERS Safety Report 6153807-7 (Version None)
Quarter: 2009Q2

REPORT INFORMATION
  Report Type: 
  Country: None (occurrence: None)
  Receive Date: 20090414
  Receipt Date: 20070629
  Transmission Date: 20091009
  Serious: Yes (Hospitalization, Other)
  Sender: FDA-Public Use
  Company Number: US-ASTRAZENECA-2006UW23357

PATIENT
  Age: 17596 Day
  Sex: Female
  Weight: 69.9 kg

DRUGS (33)
  1. SEROQUEL [Suspect]
     Indication: DEPRESSION
     Dosage: 25 TO 200 MG
     Route: 048
     Dates: start: 20010201, end: 20050101
  2. SEROQUEL [Suspect]
     Indication: SLEEP DISORDER
     Dosage: 25 TO 200 MG
     Route: 048
     Dates: start: 20010201, end: 20050101
  3. SEROQUEL [Suspect]
     Indication: BIPOLAR DISORDER
     Dosage: 25 TO 200 MG
     Route: 048
     Dates: start: 20010201, end: 20050101
  4. SEROQUEL [Suspect]
     Route: 048
     Dates: start: 20010213
  5. SEROQUEL [Suspect]
     Route: 048
     Dates: start: 20010213
  6. SEROQUEL [Suspect]
     Route: 048
     Dates: start: 20010213
  7. RISPERDAL [Concomitant]
  8. THORAZINE [Concomitant]
  9. TRILAFON [Concomitant]
  10. ZOLOFT [Concomitant]
     Dates: start: 19970101, end: 20060101
  11. CYMBALTA [Concomitant]
     Dates: start: 19970101, end: 20060101
  12. NEURONTIN [Concomitant]
     Dates: start: 19970101, end: 20060101
  13. METOPROLOL TARTRATE [Concomitant]
     Dates: start: 19970101
  14. ZYPREXA [Concomitant]
  15. KLONOPIN [Concomitant]
  16. ASPIRIN [Concomitant]
  17. TRICOR [Concomitant]
  18. PROCARDIA [Concomitant]
  19. ZOCOR [Concomitant]
  20. GLUCOPHAGE [Concomitant]
  21. AVANDIA [Concomitant]
  22. TEMAZEPAM [Concomitant]
  23. LESCOL [Concomitant]
  24. LIPITOR [Concomitant]
  25. GEMFIBROZIL [Concomitant]
  26. WELLBUTRIN [Concomitant]
  27. HUMULIN R [Concomitant]
  28. NOVOLIN [Concomitant]
  29. ALPRAZOLAM [Concomitant]
  30. ULTRACET [Concomitant]
  31. BUSPAR [Concomitant]
  32. CALCIUM + D [Concomitant]
  33. ACTONEL [Concomitant]

REACTIONS (16)
  - AVULSION FRACTURE [None]
  - CHEST PAIN [None]
  - DIABETES MELLITUS [None]
  - FIBROMYALGIA [None]
  - GASTROOESOPHAGEAL REFLUX DISEASE [None]
  - HALLUCINATION, AUDITORY [None]
  - MAJOR DEPRESSION [None]
  - MYOSITIS [None]
  - OSTEOPOROSIS [None]
  - PERIPHERAL SENSORY NEUROPATHY [None]
  - PNEUMONIA [None]
  - POLYP COLORECTAL [None]
  - PSYCHOTIC DISORDER [None]
  - RESTLESSNESS [None]
  - SUICIDAL IDEATION [None]
  - TYPE 2 DIABETES MELLITUS [None]
